FAERS Safety Report 7007823-3 (Version None)
Quarter: 2010Q3

REPORT INFORMATION
  Report Type: 
  Country: None (occurrence: None)
  Receive Date: 20100922
  Receipt Date: 20100916
  Transmission Date: 20110219
  Serious: Yes (Hospitalization)
  Sender: FDA-Public Use
  Company Number: FR-MERCK-1009FRA00058

PATIENT
  Age: 61 Year
  Sex: Male

DRUGS (5)
  1. HYZAAR [Suspect]
     Indication: HYPERTENSION
     Route: 048
     Dates: start: 20080101
  2. ADANCOR [Suspect]
     Route: 048
     Dates: start: 20060901
  3. DILTIAZEM HYDROCHLORIDE [Suspect]
     Route: 048
  4. PLAVIX [Suspect]
     Route: 048
     Dates: start: 20060901
  5. ELISOR [Suspect]
     Route: 048

REACTIONS (1)
  - SKIN ULCER [None]
